FAERS Safety Report 8778801 (Version 3)
Quarter: 2013Q2

REPORT INFORMATION
  Report Type: Spontaneous
  Country: US (occurrence: US)
  Receive Date: 20120912
  Receipt Date: 20130513
  Transmission Date: 20140414
  Serious: Yes (Other)
  Sender: FDA-Public Use
  Company Number: US-PFIZER INC-2011303542

PATIENT
  Age: 56 Year
  Sex: Female
  Weight: 104 kg

DRUGS (16)
  1. PREMPRO [Suspect]
     Indication: MENOPAUSAL SYMPTOMS
     Dosage: 1 DF (0.625MG/2.5 MG), ONCE A DAY
     Route: 048
     Dates: start: 2006
  2. PREMPRO [Suspect]
     Indication: HOT FLUSH
     Dosage: 0.625/2.5 DAILY
     Route: 048
     Dates: start: 2012
  3. VISTARIL [Concomitant]
     Dosage: 25 MG, UNK
  4. PROZAC [Concomitant]
     Dosage: 80 MG (TWO OF 40MG), ONCE A DAY
  5. IBUPROFEN [Concomitant]
     Dosage: 800 MG, THREE TIMES A DAY
  6. IBUPROFEN [Concomitant]
     Dosage: UNK, 1X/DAY
  7. PRILOSEC [Concomitant]
     Dosage: 20 MG, 1X/DAY
  8. AMITRIPTYLINE [Concomitant]
     Dosage: 25 MG, ONCE A DAY
  9. AMITRIPTYLINE [Concomitant]
     Dosage: 50 MG, 1X/DAY (25 MG, 2 EVERY NIGHT AT BEDTIME)
  10. CYMBALTA [Concomitant]
     Indication: DEPRESSION
     Dosage: 120 MG, UNK
  11. CYMBALTA [Concomitant]
     Dosage: 2X60, 1X/DAY
  12. LYRICA [Concomitant]
     Dosage: 200 MG, 1X/DAY
  13. LYRICA [Concomitant]
     Dosage: 50, 3X/DAY
  14. FISH OIL [Concomitant]
     Dosage: UNK
  15. TRIPLEFLEX [Concomitant]
     Dosage: UNK
  16. OMEPRAZOLE [Concomitant]
     Dosage: 20, 2X/DAY

REACTIONS (4)
  - Uterine cancer [Unknown]
  - Breast tenderness [Unknown]
  - Breast pain [Unknown]
  - Drug ineffective [Unknown]
